FAERS Safety Report 13403223 (Version 1)
Quarter: 2017Q2

REPORT INFORMATION
  Report Type: Spontaneous
  Country: US (occurrence: US)
  Receive Date: 20170404
  Receipt Date: 20170404
  Transmission Date: 20170830
  Serious: Yes (Other)
  Sender: FDA-Public Use
  Company Number: US-ROCHE-1742111

PATIENT
  Age: 63 Year
  Sex: Male
  Weight: 97.16 kg

DRUGS (8)
  1. ALOXI [Concomitant]
     Active Substance: PALONOSETRON HYDROCHLORIDE
     Indication: NAUSEA
     Dosage: AS NEEDED FOR NAUSEA
     Route: 065
  2. LEUCOVORIN. [Concomitant]
     Active Substance: LEUCOVORIN
     Indication: COLON CANCER METASTATIC
  3. AVASTIN [Suspect]
     Active Substance: BEVACIZUMAB
     Indication: COLON CANCER METASTATIC
     Dosage: SECOND INFUSION ON 23/MAR/2016
     Route: 065
     Dates: start: 20160309
  4. DECADRON [Concomitant]
     Active Substance: DEXAMETHASONE
     Dosage: WITH CHEMOTHERAPY TREATMENT
     Route: 042
  5. AVASTIN [Suspect]
     Active Substance: BEVACIZUMAB
     Indication: LUNG CANCER METASTATIC
     Route: 042
     Dates: start: 20160316, end: 20160404
  6. CAMPTOSAR [Concomitant]
     Active Substance: IRINOTECAN HYDROCHLORIDE
     Indication: COLON CANCER METASTATIC
  7. 5-FU [Concomitant]
     Active Substance: FLUOROURACIL
     Indication: COLON CANCER METASTATIC
  8. ATROPINE. [Concomitant]
     Active Substance: ATROPINE

REACTIONS (2)
  - Large intestinal haemorrhage [Recovered/Resolved]
  - Haemoglobin decreased [Not Recovered/Not Resolved]

NARRATIVE: CASE EVENT DATE: 20160331
